APPROVED DRUG PRODUCT: FLONASE SENSIMIST ALLERGY RELIEF
Active Ingredient: FLUTICASONE FUROATE
Strength: 0.0275MG/SPRAY
Dosage Form/Route: SPRAY, METERED;NASAL
Application: N022051 | Product #002
Applicant: HALEON US HOLDINGS LLC
Approved: Aug 2, 2016 | RLD: Yes | RS: Yes | Type: OTC

PATENTS:
Patent 8347879 | Expires: Jul 15, 2028
Patent 8062264 | Expires: Apr 5, 2026
Patent 8147461 | Expires: Oct 15, 2028